FAERS Safety Report 9804144 (Version 1)
Quarter: 2014Q1

REPORT INFORMATION
  Report Type: Spontaneous
  Country: US (occurrence: US)
  Receive Date: 20140108
  Receipt Date: 20140108
  Transmission Date: 20141002
  Serious: No
  Sender: FDA-Public Use
  Company Number: US-009507513-1312USA005525

PATIENT
  Age: 41 Year
  Sex: Female

DRUGS (1)
  1. FOLLISTIM AQ [Suspect]
     Indication: OVULATION INDUCTION
     Dosage: 200 MG/SINGLE USE VIAL PM
     Route: 058
     Dates: start: 20131110

REACTIONS (2)
  - Burning sensation [Unknown]
  - Asthenia [Unknown]
